FAERS Safety Report 12270764 (Version 2)
Quarter: 2016Q2

REPORT INFORMATION
  Report Type: Spontaneous
  Country: GR (occurrence: GR)
  Receive Date: 20160415
  Receipt Date: 20160525
  Transmission Date: 20160815
  Serious: Yes (Death, Other)
  Sender: FDA-Public Use
  Company Number: GR-009507513-1604GRC010238

PATIENT
  Age: 62 Year
  Sex: Male
  Weight: 65 kg

DRUGS (1)
  1. KEYTRUDA [Suspect]
     Active Substance: PEMBROLIZUMAB
     Indication: NON-SMALL CELL LUNG CANCER
     Dosage: 130 MG EVERY 3 WEEKS
     Route: 042
     Dates: start: 20160127, end: 20160405

REACTIONS (3)
  - Lower respiratory tract infection [Fatal]
  - Respiratory failure [Fatal]
  - Product use issue [Unknown]

NARRATIVE: CASE EVENT DATE: 20160127
